FAERS Safety Report 8131396-5 (Version None)
Quarter: 2012Q1

REPORT INFORMATION
  Report Type: 
  Country: None (occurrence: None)
  Receive Date: 20120207
  Receipt Date: 20120125
  Transmission Date: 20120608
  Serious: Yes (Hospitalization, Other)
  Sender: FDA-Public Use
  Company Number: IMP_05731_2012

PATIENT
  Age: 37 Year
  Sex: Female

DRUGS (5)
  1. PROPRANOLOL HYDROCHLORIDE [Suspect]
     Indication: PRODUCT USED FOR UNKNOWN INDICATION
     Dosage: (DF)
  2. CITALOPRAM HYDROBROMIDE [Suspect]
     Dosage: (DF)
  3. VASOPRESSOR (UNKNOWN) [Concomitant]
  4. BUPROPION HCL [Suspect]
     Indication: PRODUCT USED FOR UNKNOWN INDICATION
     Dosage: (DF)
  5. BETA BLOCKER (UNKNOWN) [Concomitant]

REACTIONS (5)
  - MULTIPLE DRUG OVERDOSE [None]
  - CARDIOGENIC SHOCK [None]
  - BLOOD GLUCOSE FLUCTUATION [None]
  - TOXICITY TO VARIOUS AGENTS [None]
  - HYPOKALAEMIA [None]
